FAERS Safety Report 4723543-X (Version None)
Quarter: 2005Q3

REPORT INFORMATION
  Report Type: 
  Country: None (occurrence: None)
  Receive Date: 20050725
  Receipt Date: 20050504
  Transmission Date: 20060218
  Serious: Yes (Life-Threatening, Other)
  Sender: FDA-Public Use
  Company Number: 2005AP02634

PATIENT
  Age: 18497 Day
  Sex: Female

DRUGS (8)
  1. TAMOXIFEN CITRATE [Suspect]
     Indication: PROPHYLAXIS
     Route: 048
     Dates: start: 20050208, end: 20050224
  2. TAMOXIFEN CITRATE [Suspect]
     Indication: BREAST CANCER IN SITU
     Route: 048
     Dates: start: 20050208, end: 20050224
  3. TAMOXIFEN CITRATE [Suspect]
     Route: 048
     Dates: start: 20050314
  4. TAMOXIFEN CITRATE [Suspect]
     Route: 048
     Dates: start: 20050314
  5. ASPIRIN [Concomitant]
  6. PRAVASTATIN [Concomitant]
  7. HUMAN INSULATARD [Concomitant]
  8. HUMAN ACTRAPID [Concomitant]

REACTIONS (1)
  - BLOOD GLUCOSE INCREASED [None]
